FAERS Safety Report 21045306 (Version 2)
Quarter: 2022Q3

REPORT INFORMATION
  Report Type: Spontaneous
  Country: CA (occurrence: CA)
  Receive Date: 20220706
  Receipt Date: 20220801
  Transmission Date: 20221026
  Serious: Yes (Other)
  Sender: FDA-Public Use
  Company Number: CA-JNJFOC-20220664533

PATIENT
  Age: 59 Year
  Sex: Female

DRUGS (1)
  1. REMICADE [Suspect]
     Active Substance: INFLIXIMAB
     Indication: Crohn^s disease
     Route: 041

REACTIONS (8)
  - Mouth ulceration [Unknown]
  - Hypertension [Unknown]
  - Back pain [Unknown]
  - Condition aggravated [Unknown]
  - Hypersensitivity [Unknown]
  - Infection [Unknown]
  - Therapeutic response shortened [Unknown]
  - Off label use [Unknown]
